FAERS Safety Report 17897308 (Version 8)
Quarter: 2021Q2

REPORT INFORMATION
  Report Type: Report from Study
  Country: US (occurrence: US)
  Receive Date: 20200615
  Receipt Date: 20210423
  Transmission Date: 20210717
  Serious: Yes (Hospitalization, Other)
  Sender: FDA-Public Use
  Company Number: NVSC2020US164826

PATIENT
  Age: 12 Year
  Sex: Female
  Weight: 64.99 kg

DRUGS (11)
  1. REVATIO [Suspect]
     Active Substance: SILDENAFIL CITRATE
     Indication: PULMONARY ARTERIAL HYPERTENSION
     Dosage: UNK
     Route: 065
  2. TREPROSTINIL. [Suspect]
     Active Substance: TREPROSTINIL
     Dosage: UNK (40 NG/KG/MIN), CONTINOUS
     Route: 065
  3. TREPROSTINIL. [Suspect]
     Active Substance: TREPROSTINIL
     Dosage: UNK (80 NG/KG/MIN)
     Route: 042
     Dates: start: 20210119
  4. TREPROSTINIL. [Suspect]
     Active Substance: TREPROSTINIL
     Dosage: UNK (84 NG/KG/MIN) CONTINOUS
     Route: 042
     Dates: start: 20210119
  5. REMODULIN [Suspect]
     Active Substance: TREPROSTINIL
     Indication: PULMONARY ARTERIAL HYPERTENSION
     Dosage: 0.080 MICROMOLE PER KILOGRAM, CONT
     Route: 041
  6. TRACLEER [Concomitant]
     Active Substance: BOSENTAN
     Indication: PRODUCT USED FOR UNKNOWN INDICATION
     Dosage: UNK
     Route: 065
  7. TREPROSTINIL. [Suspect]
     Active Substance: TREPROSTINIL
     Dosage: 80 NANOGRAM PER KILOGRAM, CONT
     Route: 042
     Dates: start: 20210119
  8. TREPROSTINIL. [Suspect]
     Active Substance: TREPROSTINIL
     Indication: PULMONARY ARTERIAL HYPERTENSION
     Dosage: UNK (22 NG/KG/MIN, CONTINUOUS)
     Route: 042
     Dates: start: 20200521
  9. TREPROSTINIL. [Suspect]
     Active Substance: TREPROSTINIL
     Dosage: UNK, (30 NG/KG/MIN)
     Route: 042
  10. SILDENAFIL CITRATE. [Concomitant]
     Active Substance: SILDENAFIL CITRATE
     Indication: PRODUCT USED FOR UNKNOWN INDICATION
     Dosage: UNK
     Route: 065
  11. WARFARIN [Concomitant]
     Active Substance: WARFARIN
     Indication: PRODUCT USED FOR UNKNOWN INDICATION
     Dosage: UNK
     Route: 065

REACTIONS (11)
  - Procedural complication [Unknown]
  - Pain [Unknown]
  - Fatigue [Unknown]
  - Weight increased [Unknown]
  - Pharyngeal swelling [Unknown]
  - Chest pain [Unknown]
  - Constipation [Unknown]
  - Abdominal pain upper [Unknown]
  - Hypersensitivity [Unknown]
  - Dyspnoea [Unknown]
  - Rash [Unknown]

NARRATIVE: CASE EVENT DATE: 20200612
